FAERS Safety Report 9799011 (Version 1)
Quarter: 2013Q4

REPORT INFORMATION
  Report Type: Spontaneous
  Country: US (occurrence: None)
  Receive Date: 20131231
  Receipt Date: 20131231
  Transmission Date: 20140711
  Serious: Yes (Other)
  Sender: FDA-Public Use
  Company Number: 7258383

PATIENT
  Age: 62 Year
  Sex: Female

DRUGS (4)
  1. LEVOTHYROXINE [Suspect]
     Indication: PRODUCT USED FOR UNKNOWN INDICATION
  2. LEVETIRACETAM [Suspect]
  3. RANITIDINE [Concomitant]
  4. MULTIVITAMINS [Concomitant]

REACTIONS (12)
  - Subdural haematoma [None]
  - Loss of consciousness [None]
  - Postoperative wound infection [None]
  - Headache [None]
  - Disturbance in attention [None]
  - Alanine aminotransferase increased [None]
  - Dysgraphia [None]
  - Aspartate aminotransferase increased [None]
  - Blood alkaline phosphatase increased [None]
  - Blood lactate dehydrogenase increased [None]
  - Accident [None]
  - Fall [None]
